FAERS Safety Report 22072888 (Version 1)
Quarter: 2023Q1

REPORT INFORMATION
  Report Type: Spontaneous
  Country: US (occurrence: US)
  Receive Date: 20230308
  Receipt Date: 20230308
  Transmission Date: 20230418
  Serious: Yes (Other)
  Sender: FDA-Public Use
  Company Number: US-BIOGEN-2023BI01191743

PATIENT
  Sex: Male
  Weight: 109.96 kg

DRUGS (4)
  1. VUMERITY [Suspect]
     Active Substance: DIROXIMEL FUMARATE
     Indication: Multiple sclerosis
     Dosage: STARTING DOSE
     Route: 050
     Dates: start: 20210911
  2. VUMERITY [Suspect]
     Active Substance: DIROXIMEL FUMARATE
     Dosage: MAINTENANCE DOSE
     Route: 050
  3. MODAFINIL [Concomitant]
     Active Substance: MODAFINIL
     Indication: Product used for unknown indication
     Dosage: TAKE 0.5-1 TABLET BY MOUTH EVERY MORNING AS NEEDED
     Route: 050
  4. HYDROXYZINE [Concomitant]
     Active Substance: HYDROXYZINE HYDROCHLORIDE
     Indication: Anxiety
     Dosage: TAKE 1 TABLET THREE TIMES DAILY AS NEEDED FOR ANXIETY, 1-2 TABLETS AT BEDTIME FOR INSOMNIA
     Route: 050

REACTIONS (3)
  - Psychotic disorder [Unknown]
  - Depression suicidal [Unknown]
  - Multiple sclerosis relapse [Unknown]
